FAERS Safety Report 16644407 (Version 1)
Quarter: 2019Q3

REPORT INFORMATION
  Report Type: Spontaneous
  Country: ES (occurrence: ES)
  Receive Date: 20190729
  Receipt Date: 20190729
  Transmission Date: 20191004
  Serious: Yes (Other)
  Sender: FDA-Public Use
  Company Number: ES-MYLANLABS-2019M1070304

PATIENT
  Age: 47 Year
  Sex: Male

DRUGS (4)
  1. QUETIAPINE. [Suspect]
     Active Substance: QUETIAPINE
     Dosage: 200MG, C/6H
     Route: 048
     Dates: start: 20180815, end: 20180816
  2. RISPERDAL [Suspect]
     Active Substance: RISPERIDONE
     Indication: SKULL FRACTURE
     Dosage: 0,5 MG 0,5 ML, C/8H (ALTERNO)
     Route: 048
     Dates: start: 20180822
  3. QUETIAPINE. [Suspect]
     Active Substance: QUETIAPINE
     Dosage: 200MG, C/8H, DESDE EL 22/08/2018 PAUTAN DECOCE. 1-1-1
     Route: 048
     Dates: start: 20180816
  4. QUETIAPINE. [Suspect]
     Active Substance: QUETIAPINE
     Indication: SKULL FRACTURE
     Dosage: 100MG, C/8H
     Route: 048
     Dates: start: 20180729, end: 20180814

REACTIONS (1)
  - Oculogyric crisis [Unknown]

NARRATIVE: CASE EVENT DATE: 20190415
